FAERS Safety Report 26183006 (Version 1)
Quarter: 2025Q4

REPORT INFORMATION
  Report Type: Spontaneous
  Country: GB (occurrence: GB)
  Receive Date: 20251221
  Receipt Date: 20251221
  Transmission Date: 20260118
  Serious: Yes (Disabling, Other)
  Sender: ACCORD
  Company Number: None

PATIENT
  Age: 34 Year
  Sex: Female

DRUGS (3)
  1. TOPIRAMATE [Suspect]
     Active Substance: TOPIRAMATE
     Indication: Adverse drug reaction
     Dosage: 50MG ONCE A DAY  INCREASED OVER TIME TO 100 MG ONCE A DAY.
     Dates: start: 20220112, end: 20250118
  2. MEBEVERINE [Concomitant]
     Active Substance: MEBEVERINE
     Indication: Adverse drug reaction
  3. DESOGESTREL [Concomitant]
     Active Substance: DESOGESTREL
     Indication: Adverse drug reaction
     Dates: start: 2018

REACTIONS (1)
  - Granuloma annulare [Recovering/Resolving]

NARRATIVE: CASE EVENT DATE: 20220801
